FAERS Safety Report 16214630 (Version 1)
Quarter: 2019Q2

REPORT INFORMATION
  Report Type: Spontaneous
  Country: US (occurrence: US)
  Receive Date: 20190418
  Receipt Date: 20190418
  Transmission Date: 20190711
  Serious: Yes (Death, Hospitalization)
  Sender: FDA-Public Use
  Company Number: US-TEVA-2019-US-1038529

PATIENT
  Age: 39 Year
  Sex: Female

DRUGS (4)
  1. CEFTRIAXONE. [Concomitant]
     Active Substance: CEFTRIAXONE
     Route: 042
  2. HYDROCORTISONE. [Concomitant]
     Active Substance: HYDROCORTISONE
     Route: 042
  3. DILTIAZEM. [Suspect]
     Active Substance: DILTIAZEM
     Indication: THYROTOXIC CRISIS
     Dosage: IV DILTIAZEM DRIP
     Route: 041
  4. THIAMAZOLE [Concomitant]
     Active Substance: METHIMAZOLE
     Indication: THYROTOXIC CRISIS
     Route: 048

REACTIONS (3)
  - Cardiac arrest [Fatal]
  - Cardiogenic shock [Fatal]
  - Acute kidney injury [Unknown]
